FAERS Safety Report 8103021 (Version 3)
Quarter: 2013Q3

REPORT INFORMATION
  Report Type: Spontaneous
  Country: MY (occurrence: MY)
  Receive Date: 20110824
  Receipt Date: 20130920
  Transmission Date: 20140515
  Serious: Yes (Other)
  Sender: FDA-Public Use
  Company Number: MY-SHIRE-ALL1-2011-02801

PATIENT
  Age: 7 Year
  Sex: Male
  Weight: 27.9 kg

DRUGS (8)
  1. ELAPRASE [Suspect]
     Indication: MUCOPOLYSACCHARIDOSIS II
     Dosage: 12 MG (INFUSION OVER FOUR HOURS), UNKNOWN
     Route: 041
     Dates: start: 20110509, end: 20110808
  2. ELAPRASE [Suspect]
     Dosage: 4 MG, UNKNOWN
     Route: 041
  3. LORATADINE [Concomitant]
     Indication: PROPHYLAXIS
     Dosage: 10 MG, UNKNOWN (PRE ERT)
     Route: 048
     Dates: start: 20110509, end: 20110808
  4. LORATADINE [Concomitant]
     Dosage: UNK, UNKNOWN
     Route: 048
  5. PHENERGAN                          /00033001/ [Concomitant]
     Indication: PROPHYLAXIS
     Dosage: 10 MG, UNKNOWN (PRE ERT)
     Route: 042
     Dates: start: 20110509, end: 20110808
  6. PHENERGAN                          /00033001/ [Concomitant]
     Dosage: 0.5 MG/KG, OTHER (4 BEFORE INFUSION)
     Route: 042
  7. PARACETAMOL [Concomitant]
     Indication: PROPHYLAXIS
     Dosage: 300 MG, UNKNOWN (PRE ERT)
     Route: 048
     Dates: start: 20110509, end: 20110808
  8. PREDNISOLONE [Concomitant]
     Indication: PREMEDICATION
     Dosage: 1 MG/KG, OTHER (4 HOURS BEFORE INFUSION)
     Route: 048

REACTIONS (6)
  - Restlessness [Recovered/Resolved]
  - Blood pressure decreased [Recovered/Resolved]
  - Urticaria [Not Recovered/Not Resolved]
  - Infusion related reaction [Not Recovered/Not Resolved]
  - Pruritus [Recovered/Resolved]
  - Rash pruritic [Recovered/Resolved]
